FAERS Safety Report 20830880 (Version 1)
Quarter: 2022Q2

REPORT INFORMATION
  Report Type: Spontaneous
  Country: US (occurrence: US)
  Receive Date: 20220515
  Receipt Date: 20220515
  Transmission Date: 20220721
  Serious: Yes (Other)
  Sender: FDA-Public Use
  Company Number: US-drreddys-LIT/USA/22/0150060

PATIENT
  Age: 62 Year
  Sex: Female

DRUGS (13)
  1. OLANZAPINE [Suspect]
     Active Substance: OLANZAPINE
     Indication: Depression
  2. FLUOXETINE [Suspect]
     Active Substance: FLUOXETINE HYDROCHLORIDE
     Indication: Depression
  3. ZOLPIDEM [Suspect]
     Active Substance: ZOLPIDEM TARTRATE
     Indication: Depression
  4. PAROXETINE [Suspect]
     Active Substance: PAROXETINE
     Indication: Depression
  5. SERTRALINE [Suspect]
     Active Substance: SERTRALINE HYDROCHLORIDE
     Indication: Depression
  6. DULOXETINE [Suspect]
     Active Substance: DULOXETINE
     Indication: Depression
  7. BUPROPION [Suspect]
     Active Substance: BUPROPION
     Indication: Depression
  8. MIRTAZAPINE [Suspect]
     Active Substance: MIRTAZAPINE
     Indication: Depression
  9. SUVOREXANT [Suspect]
     Active Substance: SUVOREXANT
     Indication: Depression
  10. ESTROGENS [Concomitant]
     Active Substance: ESTROGENS
     Indication: Persistent genital arousal disorder
     Route: 061
  11. LIDOCAINE [Concomitant]
     Active Substance: LIDOCAINE
     Indication: Persistent genital arousal disorder
     Route: 061
  12. OXYBUTYNIN [Concomitant]
     Active Substance: OXYBUTYNIN
     Indication: Persistent genital arousal disorder
  13. CYCLOBENZAPRINE [Concomitant]
     Active Substance: CYCLOBENZAPRINE
     Indication: Persistent genital arousal disorder

REACTIONS (1)
  - Drug ineffective [Unknown]
